FAERS Safety Report 21855088 (Version 4)
Quarter: 2023Q2

REPORT INFORMATION
  Report Type: Spontaneous
  Country: AR (occurrence: AR)
  Receive Date: 20230112
  Receipt Date: 20230426
  Transmission Date: 20230722
  Serious: Yes (Other)
  Sender: FDA-Public Use
  Company Number: AR-PFIZER INC-PV202300001156

PATIENT
  Age: 71 Year
  Sex: Female

DRUGS (2)
  1. IBRANCE [Suspect]
     Active Substance: PALBOCICLIB
     Indication: Breast cancer metastatic
     Dosage: 125 MG, CYCLIC (DAILY 3X1 SCHEME)
     Dates: start: 20210424, end: 20230109
  2. FULVESTRANT [Concomitant]
     Active Substance: FULVESTRANT
     Dosage: UNK

REACTIONS (7)
  - Cataract [Recovered/Resolved]
  - Dizziness [Not Recovered/Not Resolved]
  - Decreased immune responsiveness [Not Recovered/Not Resolved]
  - Malaise [Not Recovered/Not Resolved]
  - Anaemia [Not Recovered/Not Resolved]
  - Balance disorder [Unknown]
  - Hypotension [Unknown]

NARRATIVE: CASE EVENT DATE: 20221201
